FAERS Safety Report 5805239-6 (Version None)
Quarter: 2008Q3

REPORT INFORMATION
  Report Type: 
  Country: None (occurrence: None)
  Receive Date: 20080703
  Receipt Date: 20080627
  Transmission Date: 20090109
  Serious: Yes (Other)
  Sender: FDA-Public Use
  Company Number: CHPA2008US10667

PATIENT
  Age: 20 Year
  Sex: Male

DRUGS (1)
  1. EXCEDRIN (MIGRAINE) [Suspect]
     Indication: PAIN
     Dosage: 4 DF, ONCE/SINGLE, ORAL
     Route: 048
     Dates: start: 20080627, end: 20080627

REACTIONS (2)
  - HAEMATEMESIS [None]
  - INCORRECT DOSE ADMINISTERED [None]
